FAERS Safety Report 5473949-9 (Version None)
Quarter: 2007Q4

REPORT INFORMATION
  Report Type: 
  Country: None (occurrence: None)
  Receive Date: 20071001
  Receipt Date: 20070925
  Transmission Date: 20080405
  Serious: Yes (Other)
  Sender: FDA-Public Use
  Company Number: US-PFIZER INC-2007079970

PATIENT
  Sex: Female
  Weight: 66 kg

DRUGS (1)
  1. DEPO-ESTRADIOL [Suspect]
     Indication: OESTROGEN REPLACEMENT THERAPY
     Dosage: TEXT:1 CC PER MONTH
     Dates: start: 19910101, end: 20070601

REACTIONS (2)
  - BLOOD CHOLESTEROL INCREASED [None]
  - GALLBLADDER OPERATION [None]
